FAERS Safety Report 20204885 (Version 1)
Quarter: 2021Q4

REPORT INFORMATION
  Report Type: Spontaneous
  Country: NL (occurrence: NL)
  Receive Date: 20211220
  Receipt Date: 20211220
  Transmission Date: 20220303
  Serious: Yes (Other)
  Sender: FDA-Public Use
  Company Number: NL-LRB-00718280

PATIENT
  Age: 48 Year
  Sex: Female
  Weight: 80 kg

DRUGS (14)
  1. PREGABALIN [Suspect]
     Active Substance: PREGABALIN
     Indication: Neuralgia
     Dosage: 75 MILLIGRAM, TID, 1 CAPSULE 3 TIMES A DAY
     Route: 065
     Dates: start: 202111
  2. METOPROLOL TABLET MGA  25MG (SUCCINAAT) / Brand name not specifiedM... [Concomitant]
     Indication: Product used for unknown indication
     Dosage: MODIFIED-RELEASE TABLET, 25 MG (MILLIGRAMS), UNK
     Route: 065
  3. GLICLAZIDE TABLET MGA 80MG / Brand name not specifiedGLICLAZIDE TAB... [Concomitant]
     Indication: Product used for unknown indication
     Dosage: MODIFIED-RELEASE TABLET, 80 MG (MILLIGRAMS), UNK
     Route: 065
  4. MONTELUKAST TABLET OMHULD 10MG / Brand name not specifiedMONTELUKAS... [Concomitant]
     Indication: Product used for unknown indication
     Dosage: COATED TABLET, 10 MG (MILLIGRAMS), UNK
     Route: 065
  5. METFORMINE TABLET MGA  500MG / Brand name not specifiedMETFORMINE T... [Concomitant]
     Indication: Product used for unknown indication
     Dosage: GASTRO-RESISTANT CAPSULE, 40 MG (MILLIGRAMS), UNK
     Route: 065
  6. OMEPRAZOL CAPSULE MSR 40MG / Brand name not specifiedOMEPRAZOL CAPS... [Concomitant]
     Indication: Product used for unknown indication
     Dosage: GASTRO-RESISTANT CAPSULE, 40 MG (MILLIGRAMS), UNK
     Route: 065
  7. AZITROMYCINE TABLET 250MG / Brand name not specifiedAZITROMYCINE TA... [Concomitant]
     Indication: Product used for unknown indication
     Dosage: TABLET, 250 MG (MILLIGRAM), UNK
     Route: 065
  8. ACETYLSALICYLZUUR TABLET  80MG / Brand name not specifiedACETYLSALI... [Concomitant]
     Indication: Product used for unknown indication
     Dosage: TABLET, 80 MG (MILLIGRAM), UNK
     Route: 065
  9. PARACETAMOL / Brand name not specifiedPARACETAMOL [Concomitant]
     Indication: Product used for unknown indication
     Dosage: 500 MG, UNK
     Route: 065
  10. DESLORATADINE SMELTTABLET 5MG / Brand name not specifiedDESLORATADI... [Concomitant]
     Indication: Product used for unknown indication
     Dosage: MELTING TABLET, 5 MG (MILLIGRAMS), UNK
     Route: 065
  11. IRBESARTAN TABLET 300MG / Brand name not specifiedIRBESARTAN TABLET... [Concomitant]
     Indication: Product used for unknown indication
     Dosage: TABLET, 300 MG (MILLIGRAM), UNK
     Route: 065
  12. CODEINE TABLET 10MG / Brand name not specifiedCODEINE TABLET 10MG [Concomitant]
     Indication: Product used for unknown indication
     Dosage: TABLET, 10 MG (MILLIGRAM), UNK
     Route: 065
  13. NIFEDIPINE TABLET MGA 60MG / Brand name not specifiedNIFEDIPINE TAB... [Concomitant]
     Indication: Product used for unknown indication
     Dosage: MODIFIED-RELEASE TABLET, 60 MG (MILLIGRAMS), UNK
     Route: 065
  14. HYDROCHLOORTHIAZIDE TABLET 12,5MG / Brand name not specifiedHYDROCH... [Concomitant]
     Indication: Product used for unknown indication
     Dosage: TABLET, 12,5 MG (MILLIGRAM), UNK
     Route: 065

REACTIONS (4)
  - Hallucination [Not Recovered/Not Resolved]
  - Panic attack [Not Recovered/Not Resolved]
  - Blood glucose fluctuation [Not Recovered/Not Resolved]
  - Headache [Not Recovered/Not Resolved]

NARRATIVE: CASE EVENT DATE: 20211115
